FAERS Safety Report 17706202 (Version 3)
Quarter: 2020Q2

REPORT INFORMATION
  Report Type: Spontaneous
  Country: DE (occurrence: DE)
  Receive Date: 20200424
  Receipt Date: 20200521
  Transmission Date: 20200714
  Serious: Yes (Hospitalization)
  Sender: FDA-Public Use
  Company Number: PHHY2019DE197465

PATIENT
  Age: 48 Year
  Sex: Male
  Weight: 61 kg

DRUGS (15)
  1. VARGATEF [Suspect]
     Active Substance: NINTEDANIB
     Indication: NON-SMALL CELL LUNG CANCER
     Dosage: 400 MG, QD
     Route: 048
     Dates: start: 20190712, end: 20190808
  2. FOLIC ACID. [Concomitant]
     Active Substance: FOLIC ACID
     Indication: PRODUCT USED FOR UNKNOWN INDICATION
     Dosage: UNK
     Route: 065
     Dates: start: 20180928
  3. PREDNISOLON [Concomitant]
     Active Substance: PREDNISOLONE
     Indication: AUTOIMMUNE NEPHRITIS
  4. VARGATEF [Suspect]
     Active Substance: NINTEDANIB
     Indication: LUNG ADENOCARCINOMA
     Dosage: 400 MG, QD
     Route: 048
     Dates: start: 20190810, end: 20190814
  5. VARGATEF [Suspect]
     Active Substance: NINTEDANIB
     Dosage: 100 MG, BID
     Route: 065
     Dates: start: 20190823
  6. GRANISETRON [Concomitant]
     Active Substance: GRANISETRON
     Indication: NAUSEA
     Dosage: UNK, PRN
     Route: 065
     Dates: start: 201810
  7. PALLADON [Concomitant]
     Active Substance: HYDROMORPHONE
     Indication: PRODUCT USED FOR UNKNOWN INDICATION
     Dosage: UNK
     Route: 065
     Dates: start: 201907
  8. PREDNISOLON [Concomitant]
     Active Substance: PREDNISOLONE
     Indication: GLOMERULONEPHRITIS
     Dosage: UNK
     Route: 065
     Dates: start: 201804, end: 201909
  9. DOCETAXEL. [Suspect]
     Active Substance: DOCETAXEL
     Indication: LUNG ADENOCARCINOMA
     Dosage: FORMULATION: LIQUID DOSE: 75 MG/M? BSA
     Route: 042
     Dates: start: 20190712
  10. LAMOTRIGIN [Concomitant]
     Active Substance: LAMOTRIGINE
     Indication: PRODUCT USED FOR UNKNOWN INDICATION
     Dosage: 50 MG, QD
     Route: 048
     Dates: start: 20190315
  11. NOVALGINA [Concomitant]
     Active Substance: METAMIZOLE SODIUM
     Indication: PAIN
     Dosage: UNK
     Route: 065
     Dates: start: 201907
  12. PALLADON [Concomitant]
     Active Substance: HYDROMORPHONE
     Indication: PAIN
  13. PALLADON [Concomitant]
     Active Substance: HYDROMORPHONE
     Indication: PAIN
     Dosage: 8 MG, QD
     Route: 048
     Dates: start: 20190703
  14. PANTOPRAZOLE [Concomitant]
     Active Substance: PANTOPRAZOLE
     Indication: GASTRITIS
     Dosage: UNK
     Route: 065
     Dates: start: 201810
  15. ORFIRIL [Concomitant]
     Active Substance: VALPROATE SODIUM
     Indication: EPILEPSY
     Dosage: 300 MG, QD
     Route: 048
     Dates: start: 20190314

REACTIONS (8)
  - Depression [Not Recovered/Not Resolved]
  - Vomiting [Recovered/Resolved]
  - Hepatobiliary disease [Recovered/Resolved]
  - Pneumonia [Recovered/Resolved]
  - White blood cell count decreased [Recovered/Resolved]
  - Hepatic enzyme increased [Recovered/Resolved]
  - Neutrophil count decreased [Recovered/Resolved]
  - Pneumonia [Recovered/Resolved]

NARRATIVE: CASE EVENT DATE: 20190714
